FAERS Safety Report 12456548 (Version 1)
Quarter: 2016Q2

REPORT INFORMATION
  Report Type: Spontaneous
  Country: US (occurrence: US)
  Receive Date: 20160610
  Receipt Date: 20160610
  Transmission Date: 20160815
  Serious: No
  Sender: FDA-Public Use
  Company Number: GXBR2016US000894

PATIENT
  Sex: Female
  Weight: 77.98 kg

DRUGS (1)
  1. PHENTERMINE HYDROCHLORIDE CAPSULES USP [Suspect]
     Active Substance: PHENTERMINE HYDROCHLORIDE
     Indication: WEIGHT DECREASED
     Dosage: 30 MG, QD IN THE MORNING
     Route: 048
     Dates: start: 201602

REACTIONS (2)
  - Drug ineffective [Not Recovered/Not Resolved]
  - Drug screen negative [Not Recovered/Not Resolved]
